FAERS Safety Report 9204168 (Version 1)
Quarter: 2013Q2

REPORT INFORMATION
  Report Type: Spontaneous
  Country: CN (occurrence: CN)
  Receive Date: 20130402
  Receipt Date: 20130402
  Transmission Date: 20140414
  Serious: Yes (Hospitalization, Other)
  Sender: FDA-Public Use
  Company Number: CN-PFIZER INC-2013099661

PATIENT
  Sex: 0

DRUGS (3)
  1. LIPITOR [Suspect]
     Indication: CORONARY ARTERY DISEASE
     Dosage: 40 MG, DAILY
     Route: 048
  2. LIPITOR [Suspect]
     Dosage: 80 MG, DAILY
     Route: 048
  3. PANTOPRAZOLE [Concomitant]
     Dosage: UNK
     Route: 048

REACTIONS (2)
  - Coronary artery occlusion [Unknown]
  - Transaminases increased [Unknown]
